FAERS Safety Report 25542358 (Version 3)
Quarter: 2025Q3

REPORT INFORMATION
  Report Type: Report from Study
  Country: CA (occurrence: CA)
  Receive Date: 20250711
  Receipt Date: 20250805
  Transmission Date: 20251021
  Serious: Yes (Death, Life-Threatening, Hospitalization)
  Sender: ABBVIE
  Company Number: CA-ABBVIE-6360579

PATIENT
  Age: 66 Year
  Sex: Male
  Weight: 35 kg

DRUGS (13)
  1. HUMIRA [Suspect]
     Active Substance: ADALIMUMAB
     Indication: Colitis ulcerative
     Route: 058
     Dates: start: 201410, end: 20180121
  2. HUMIRA [Suspect]
     Active Substance: ADALIMUMAB
     Route: 058
     Dates: start: 20180409, end: 20181226
  3. METFORMIN HYDROCHLORIDE [Concomitant]
     Active Substance: METFORMIN HYDROCHLORIDE
     Indication: Diabetes mellitus
     Route: 048
     Dates: start: 201201
  4. CALCIUM +VITAMIN D [Concomitant]
     Indication: Colitis ulcerative
     Dosage: 500 MG +400 IU
     Route: 048
     Dates: start: 2015, end: 20250709
  5. ASPIRINE EC [Concomitant]
     Indication: Prophylaxis
     Route: 048
     Dates: start: 20181113, end: 2025
  6. ALBUTEROL [Concomitant]
     Active Substance: ALBUTEROL
     Indication: Chronic obstructive pulmonary disease
     Route: 055
     Dates: start: 20181113, end: 20250709
  7. ADVAIR HFA [Concomitant]
     Active Substance: FLUTICASONE PROPIONATE\SALMETEROL XINAFOATE
     Indication: Chronic obstructive pulmonary disease
     Dosage: INHALATION
     Route: 055
     Dates: start: 20210317, end: 2025
  8. STELARA [Concomitant]
     Active Substance: USTEKINUMAB
     Indication: Colitis ulcerative
     Route: 058
     Dates: start: 20210818
  9. TRILEGY ELLIPTA [Concomitant]
     Indication: Chronic obstructive pulmonary disease
     Dosage: 1 PUFF, INHALATION
     Dates: start: 20250503, end: 202506
  10. INNOHEP [Concomitant]
     Active Substance: TINZAPARIN SODIUM
     Indication: Prophylaxis
     Dosage: END DATE MAY 2025
     Route: 058
     Dates: start: 20250503
  11. PREDNISONE [Concomitant]
     Active Substance: PREDNISONE
     Indication: Chronic obstructive pulmonary disease
     Route: 048
     Dates: start: 20250531, end: 20250605
  12. HUMULIN R [Concomitant]
     Active Substance: INSULIN HUMAN
     Indication: Diabetes mellitus
     Dosage: END DATE MAY 2025
     Route: 058
     Dates: start: 20250503
  13. HUMULIN N [Concomitant]
     Active Substance: INSULIN HUMAN
     Indication: Diabetes mellitus
     Route: 058
     Dates: start: 20250505, end: 20250703

REACTIONS (1)
  - Chronic obstructive pulmonary disease [Fatal]

NARRATIVE: CASE EVENT DATE: 20250629
